FAERS Safety Report 25377242 (Version 1)
Quarter: 2025Q2

REPORT INFORMATION
  Report Type: Spontaneous
  Country: US (occurrence: US)
  Receive Date: 20250530
  Receipt Date: 20250530
  Transmission Date: 20250717
  Serious: No
  Sender: OTSUKA
  Company Number: US-OTSUKA-2024_025607

PATIENT
  Sex: Female

DRUGS (1)
  1. JYNARQUE [Suspect]
     Active Substance: TOLVAPTAN
     Indication: Product used for unknown indication
     Route: 065

REACTIONS (4)
  - Vaginal pH abnormal [Unknown]
  - Vulvovaginal discomfort [Unknown]
  - Vaginal infection [Unknown]
  - Exposure via partner [Unknown]
